FAERS Safety Report 23198107 (Version 2)
Quarter: 2024Q1

REPORT INFORMATION
  Report Type: Report from Study
  Country: US (occurrence: None)
  Receive Date: 20231117
  Receipt Date: 20240103
  Transmission Date: 20240410
  Serious: Yes (Other)
  Sender: FDA-Public Use
  Company Number: 2023A258557

PATIENT
  Age: 747 Month
  Sex: Female
  Weight: 112.9 kg

DRUGS (2)
  1. TEZSPIRE [Suspect]
     Active Substance: TEZEPELUMAB-EKKO
     Indication: Asthma
     Route: 058
  2. PRILOSEC [Suspect]
     Active Substance: OMEPRAZOLE MAGNESIUM
     Route: 048

REACTIONS (13)
  - COVID-19 pneumonia [Unknown]
  - Pneumonia [Unknown]
  - Dysphonia [Unknown]
  - Oropharyngeal pain [Unknown]
  - Cough [Unknown]
  - Multiple allergies [Unknown]
  - Sinusitis [Unknown]
  - Rhinitis allergic [Unknown]
  - Nasopharyngitis [Unknown]
  - Hiatus hernia [Unknown]
  - Obesity [Unknown]
  - Snoring [Unknown]
  - Drug ineffective [Unknown]

NARRATIVE: CASE EVENT DATE: 20230301
